FAERS Safety Report 7707323-9 (Version None)
Quarter: 2011Q3

REPORT INFORMATION
  Report Type: 
  Country: None (occurrence: None)
  Receive Date: 20110824
  Receipt Date: 20101012
  Transmission Date: 20111222
  Serious: No
  Sender: FDA-Public Use
  Company Number: US-MYLANLABS-2010S1019023

PATIENT
  Age: 87 Year
  Sex: Female

DRUGS (1)
  1. LISINOPRIL [Suspect]

REACTIONS (5)
  - BRONCHITIS [None]
  - COUGH [None]
  - SWELLING FACE [None]
  - WHEEZING [None]
  - OROPHARYNGEAL PAIN [None]
